FAERS Safety Report 9104244 (Version 2)
Quarter: 2013Q1

REPORT INFORMATION
  Report Type: Spontaneous
  Country: CO (occurrence: CO)
  Receive Date: 20130219
  Receipt Date: 20130226
  Transmission Date: 20140127
  Serious: Yes (Hospitalization)
  Sender: FDA-Public Use
  Company Number: PHHY2013CO015143

PATIENT
  Sex: Female

DRUGS (6)
  1. ACLASTA [Suspect]
     Indication: OSTEOPOROSIS
     Dosage: UNK YEARLY
     Route: 042
     Dates: start: 20120113
  2. LOSARTAN [Concomitant]
     Dosage: UNK , BID
  3. LOVASTATIN [Concomitant]
     Dosage: UNK ONCE A DAY
  4. PARACETAMOL [Concomitant]
     Dosage: UNK OCCASIONALLY
  5. OMEPRAZOLE [Concomitant]
     Dosage: UNK ONCE A DAY
  6. AMLODIPINE [Concomitant]
     Dosage: UNK, BID

REACTIONS (2)
  - Intracranial aneurysm [Unknown]
  - Amnesia [Unknown]
